FAERS Safety Report 5597154-0 (Version None)
Quarter: 2008Q1

REPORT INFORMATION
  Report Type: 
  Country: None (occurrence: None)
  Receive Date: 20080121
  Receipt Date: 20080110
  Transmission Date: 20080703
  Serious: Yes (Hospitalization, Other)
  Sender: FDA-Public Use
  Company Number: PHRM2008FR00561

PATIENT
  Age: 21 Year
  Sex: Female

DRUGS (3)
  1. VOLTAREN [Suspect]
     Route: 061
     Dates: start: 20071124, end: 20071203
  2. NIFLURIL [Concomitant]
     Indication: BACK PAIN
     Dates: start: 20071124, end: 20071202
  3. TETRAZEPAM [Concomitant]
     Indication: BACK PAIN
     Dates: start: 20071124, end: 20071202

REACTIONS (12)
  - APPLICATION SITE REACTION [None]
  - BLOOD URINE PRESENT [None]
  - C-REACTIVE PROTEIN INCREASED [None]
  - EOSINOPHIL COUNT ABNORMAL [None]
  - ERYTHEMA [None]
  - LEUKOCYTURIA [None]
  - NITRITE URINE ABSENT [None]
  - OEDEMA PERIPHERAL [None]
  - PRURITUS [None]
  - PYREXIA [None]
  - URINE ANALYSIS ABNORMAL [None]
  - URTICARIA [None]
